FAERS Safety Report 7526230-8 (Version None)
Quarter: 2011Q2

REPORT INFORMATION
  Report Type: 
  Country: None (occurrence: None)
  Receive Date: 20110527
  Receipt Date: 20110517
  Transmission Date: 20111010
  Serious: Yes (Hospitalization)
  Sender: FDA-Public Use
  Company Number: UTC-007234

PATIENT
  Age: 50 Year
  Sex: Male
  Weight: 111.8 kg

DRUGS (4)
  1. COUMADIN [Concomitant]
  2. DIURETICS (DIURETICS) [Concomitant]
  3. TRACLEER [Concomitant]
  4. REMODULIN [Suspect]
     Indication: PULMONARY ARTERIAL HYPERTENSION
     Dosage: 25.92 UG/KG (0.018 UG/KG, 1 IN 1 MIN),SUBCUTANEOUS NOT APPLICABLE
     Route: 058
     Dates: start: 20110408

REACTIONS (6)
  - HEADACHE [None]
  - PAIN IN EXTREMITY [None]
  - OVERDOSE [None]
  - NAUSEA [None]
  - DIARRHOEA [None]
  - VOMITING [None]
